FAERS Safety Report 23306635 (Version 1)
Quarter: 2023Q4

REPORT INFORMATION
  Report Type: Spontaneous
  Country: KR (occurrence: KR)
  Receive Date: 20231218
  Receipt Date: 20231218
  Transmission Date: 20240110
  Serious: Yes (Other)
  Sender: FDA-Public Use
  Company Number: KR-ASTELLAS-2023US032524

PATIENT
  Age: 80 Year
  Sex: Male

DRUGS (6)
  1. MIRABEGRON [Suspect]
     Active Substance: MIRABEGRON
     Indication: Hypertonic bladder
     Dosage: 50 MG, ONCE DAILY (ONE TABLET ONCE DAILY AROUND 8:30PM)
     Route: 065
  2. MIRABEGRON [Suspect]
     Active Substance: MIRABEGRON
     Dosage: 50 MG, TWICE DAILY (TOOK ONE TABLET AT 8:30PM AND TOOK IT AGAIN AT 9:30PM BECAUSE HE FORGOT)
     Route: 065
     Dates: start: 20231028, end: 20231028
  3. MIRABEGRON [Suspect]
     Active Substance: MIRABEGRON
     Dosage: UNK UNK, UNKNOWN FREQ.
     Route: 065
  4. HARNAL [Suspect]
     Active Substance: TAMSULOSIN HYDROCHLORIDE
     Indication: Urinary tract disorder
     Dosage: 0.2 MG, ONCE DAILY, (ONE TABLET ONCE DAILY AT 10PM SINCE ABOUT 5-6 YEARS AGO FOR ABOUT 2-3 MONTHS)
     Route: 065
  5. HARNAL [Suspect]
     Active Substance: TAMSULOSIN HYDROCHLORIDE
     Dosage: 0.4 MG, ONCE DAILY, (INCREASED TO TWO TABLETS ONCE DAILY AT 10PM)
     Route: 065
  6. AVODART [Concomitant]
     Active Substance: DUTASTERIDE
     Indication: Product used for unknown indication
     Dosage: UNK UNK, ONCE DAILY, (TAKEN AT 10PM)
     Route: 065

REACTIONS (6)
  - Arrhythmia [Unknown]
  - Bradycardia [Unknown]
  - Hot flush [Unknown]
  - Drug ineffective [Unknown]
  - Accidental overdose [Unknown]
  - Extra dose administered [Unknown]

NARRATIVE: CASE EVENT DATE: 20231028
